FAERS Safety Report 5780197-1 (Version None)
Quarter: 2008Q2

REPORT INFORMATION
  Report Type: 
  Country: None (occurrence: None)
  Receive Date: 20080620
  Receipt Date: 20080610
  Transmission Date: 20081010
  Serious: Yes (Other)
  Sender: FDA-Public Use
  Company Number: DE-ROCHE-536902

PATIENT
  Sex: Male

DRUGS (1)
  1. ROFERON-A [Suspect]
     Route: 065

REACTIONS (1)
  - MARROW HYPERPLASIA [None]
